FAERS Safety Report 16989992 (Version 1)
Quarter: 2019Q4

REPORT INFORMATION
  Report Type: Spontaneous
  Country: US (occurrence: US)
  Receive Date: 20190920
  Receipt Date: 20190920
  Transmission Date: 20200122
  Serious: Yes (Hospitalization, Other)
  Sender: FDA-Public Use
  Company Number: None

PATIENT
  Age: 81 Year
  Sex: Male
  Weight: 70.31 kg

DRUGS (1)
  1. AMIODARONE [Suspect]
     Active Substance: AMIODARONE
     Indication: ATRIAL FIBRILLATION
     Dates: start: 20190515, end: 20190818

REACTIONS (5)
  - Dyspnoea [None]
  - Pneumonia [None]
  - Toxicity to various agents [None]
  - Oxygen saturation decreased [None]
  - Hepatic enzyme increased [None]

NARRATIVE: CASE EVENT DATE: 20190818
